FAERS Safety Report 24875302 (Version 1)
Quarter: 2025Q1

REPORT INFORMATION
  Report Type: Spontaneous
  Country: US (occurrence: None)
  Receive Date: 20250122
  Receipt Date: 20250122
  Transmission Date: 20250409
  Serious: Yes (Hospitalization)
  Sender: FDA-CTU
  Company Number: None

PATIENT
  Age: 65 Year
  Sex: Male
  Weight: 102.9 kg

DRUGS (1)
  1. SKYRIZI [Suspect]
     Active Substance: RISANKIZUMAB-RZAA
     Indication: Crohn^s disease
     Route: 042
     Dates: start: 20241014, end: 20241014

REACTIONS (4)
  - Chest discomfort [None]
  - Diaphragmatic spasm [None]
  - Feeling abnormal [None]
  - Infusion related reaction [None]

NARRATIVE: CASE EVENT DATE: 20241014
